FAERS Safety Report 25123841 (Version 3)
Quarter: 2025Q3

REPORT INFORMATION
  Report Type: Spontaneous
  Country: GB (occurrence: GB)
  Receive Date: 20250326
  Receipt Date: 20250716
  Transmission Date: 20251021
  Serious: Yes (Life-Threatening, Hospitalization, Other)
  Sender: RANBAXY
  Company Number: GB-SUN PHARMACEUTICAL INDUSTRIES LTD-2025R1-500468

PATIENT
  Age: 53 Year
  Sex: Female

DRUGS (1)
  1. PROPYLTHIOURACIL [Suspect]
     Active Substance: PROPYLTHIOURACIL
     Indication: Graves^ disease
     Route: 065

REACTIONS (4)
  - Neutropenic sepsis [Unknown]
  - Febrile neutropenia [Unknown]
  - Agranulocytosis [Unknown]
  - Neutrophil toxic granulation present [Unknown]
